FAERS Safety Report 6558460-6 (Version None)
Quarter: 2010Q1

REPORT INFORMATION
  Report Type: 
  Country: None (occurrence: None)
  Receive Date: 20100129
  Receipt Date: 20100121
  Transmission Date: 20100710
  Serious: Yes (Other)
  Sender: FDA-Public Use
  Company Number: BR-JNJFOC-20100109209

PATIENT
  Age: 74 Year
  Sex: Female
  Weight: 90 kg

DRUGS (8)
  1. IMOSEC [Suspect]
     Route: 065
  2. IMOSEC [Suspect]
     Indication: DIARRHOEA
     Route: 065
  3. CARDIZEM [Concomitant]
     Indication: HYPERTENSION
  4. ATACAND [Concomitant]
     Indication: HYPERTENSION
  5. OMEPRAZOLE [Concomitant]
     Indication: GASTRITIS
  6. LEXAPRO [Concomitant]
     Indication: ANTIDEPRESSANT THERAPY
  7. SIMVASTATIN [Concomitant]
     Indication: BLOOD CHOLESTEROL
  8. RIVOTRIL [Concomitant]
     Indication: MUSCLE RELAXANT THERAPY

REACTIONS (4)
  - DRUG INEFFECTIVE [None]
  - HAEMATOCHEZIA [None]
  - OVERDOSE [None]
  - PRURITUS GENERALISED [None]
